FAERS Safety Report 4594245-8 (Version None)
Quarter: 2005Q1

REPORT INFORMATION
  Report Type: 
  Country: None (occurrence: None)
  Receive Date: 20050301
  Receipt Date: 20040812
  Transmission Date: 20050727
  Serious: No
  Sender: FDA-Public Use
  Company Number: US-GLAXOSMITHKLINE-A0521982A

PATIENT
  Age: 42 Year
  Sex: Male

DRUGS (3)
  1. VALTREX [Suspect]
     Dosage: 250MG PER DAY
     Route: 048
  2. NEXIUM [Concomitant]
  3. PROZAC [Concomitant]

REACTIONS (1)
  - ALOPECIA [None]
